FAERS Safety Report 15404073 (Version 1)
Quarter: 2018Q3

REPORT INFORMATION
  Report Type: Spontaneous
  Country: US (occurrence: US)
  Receive Date: 20180919
  Receipt Date: 20180919
  Transmission Date: 20181010
  Serious: No
  Sender: FDA-Public Use
  Company Number: US-AVADEL SPECIALTY PHARMACEUTICALS, LLC-2018AVA00233

PATIENT
  Age: 69 Year
  Sex: Male
  Weight: 117.91 kg

DRUGS (8)
  1. METFORMIN [Concomitant]
     Active Substance: METFORMIN HYDROCHLORIDE
     Dosage: UNK, 2X/DAY
  2. HYDROCHLOROTHIAZIDE. [Concomitant]
     Active Substance: HYDROCHLOROTHIAZIDE
     Dosage: UNK, 1X/DAY
  3. NOCTIVA [Suspect]
     Active Substance: DESMOPRESSIN ACETATE
     Indication: URINARY RETENTION
     Dosage: 0.83 ?G IN THE LEFT NOSTRIL, 1X/DAY, HALF AN HOUR BEFORE BED
     Route: 045
     Dates: start: 20180731
  4. UNSPECIFIED BLOOD PRESSURE MEDICATIONS [Concomitant]
     Active Substance: UNSPECIFIED INGREDIENT
  5. SPIRONOLACTONE. [Concomitant]
     Active Substance: SPIRONOLACTONE
     Dosage: UNK, 1X/DAY
  6. OMEPRAZOLE. [Concomitant]
     Active Substance: OMEPRAZOLE
     Dosage: UNK, 1X/DAY
  7. UNSPECIFIED INSULIN [Concomitant]
     Active Substance: INSULIN NOS
  8. FLOMAX [Concomitant]
     Active Substance: TAMSULOSIN HYDROCHLORIDE
     Dosage: UNK, 1X/DAY

REACTIONS (5)
  - Dizziness postural [Recovering/Resolving]
  - Insomnia [Unknown]
  - Product use in unapproved indication [Not Recovered/Not Resolved]
  - Restlessness [Unknown]
  - Feeling abnormal [Recovered/Resolved]

NARRATIVE: CASE EVENT DATE: 20180731
